FAERS Safety Report 21822108 (Version 1)
Quarter: 2023Q1

REPORT INFORMATION
  Report Type: Spontaneous
  Country: US (occurrence: US)
  Receive Date: 20230105
  Receipt Date: 20230105
  Transmission Date: 20230418
  Serious: No
  Sender: FDA-Public Use
  Company Number: US-AUROBINDO-AUR-APL-2022-000361

PATIENT
  Age: 70 Year
  Sex: Female
  Weight: 73.9 kg

DRUGS (3)
  1. CEPHALEXIN [Suspect]
     Active Substance: CEPHALEXIN
     Indication: Urinary tract infection
     Dosage: 1 DOSAGE FORM, TWO TIMES A DAY
     Route: 065
     Dates: start: 20190422
  2. CEPHALEXIN [Suspect]
     Active Substance: CEPHALEXIN
     Dosage: 1 DOSAGE FORM, ONCE A DAY
     Route: 065
     Dates: start: 20200523
  3. CEPHALEXIN [Suspect]
     Active Substance: CEPHALEXIN
     Dosage: 1 DOSAGE FORM, ONCE A DAY
     Route: 065
     Dates: start: 20211229

REACTIONS (2)
  - Pruritus [Unknown]
  - Feeling abnormal [Unknown]
